FAERS Safety Report 21481074 (Version 1)
Quarter: 2022Q4

REPORT INFORMATION
  Report Type: Spontaneous
  Country: US (occurrence: US)
  Receive Date: 20221019
  Receipt Date: 20221019
  Transmission Date: 20230112
  Serious: No
  Sender: FDA-Public Use
  Company Number: US-JNJFOC-20221019504

PATIENT
  Age: 52 Year
  Sex: Female

DRUGS (3)
  1. IMODIUM [Suspect]
     Active Substance: LOPERAMIDE HYDROCHLORIDE
     Indication: Diarrhoea
     Route: 065
  2. REMODULIN [Suspect]
     Active Substance: TREPROSTINIL
     Indication: Pulmonary arterial hypertension
     Dosage: DELIVERED VIA CADD MS3 PUMP
     Route: 058
     Dates: start: 202104
  3. REMODULIN [Suspect]
     Active Substance: TREPROSTINIL
     Route: 058

REACTIONS (1)
  - Constipation [Unknown]
